FAERS Safety Report 10611014 (Version 2)
Quarter: 2014Q4

REPORT INFORMATION
  Report Type: Report from Study
  Country: DE (occurrence: DE)
  Receive Date: 20141126
  Receipt Date: 20141126
  Transmission Date: 20150529
  Serious: Yes (Hospitalization)
  Sender: FDA-Public Use
  Company Number: DE-ABBVIE-14K-062-1302379-00

PATIENT
  Age: 22 Year
  Sex: Male
  Weight: 44 kg

DRUGS (5)
  1. HUMIRA [Suspect]
     Active Substance: ADALIMUMAB
     Indication: CROHN^S DISEASE
     Route: 058
     Dates: start: 20110217
  2. AZATHIOPRINE. [Concomitant]
     Active Substance: AZATHIOPRINE
     Indication: CROHN^S DISEASE
     Dosage: 1-0-0
     Route: 048
  3. ARCOXIA [Concomitant]
     Active Substance: ETORICOXIB
     Indication: PRODUCT USED FOR UNKNOWN INDICATION
  4. CLEXANE [Concomitant]
     Active Substance: ENOXAPARIN SODIUM
     Indication: PRODUCT USED FOR UNKNOWN INDICATION
     Route: 058
  5. NOVALGIN [Concomitant]
     Active Substance: METAMIZOLE SODIUM
     Indication: PRODUCT USED FOR UNKNOWN INDICATION
     Dosage: 2-2-2-2

REACTIONS (14)
  - Jejunal stenosis [Unknown]
  - Enterocolitis [Recovered/Resolved]
  - Intestinal fibrosis [Recovered/Resolved]
  - Subileus [Unknown]
  - Intestinal anastomosis complication [Recovered/Resolved]
  - Abdominal pain [Unknown]
  - Anal haemorrhage [Unknown]
  - Peritoneal adhesions [Unknown]
  - Rhinitis allergic [Unknown]
  - Hepatic cyst [Unknown]
  - Haemorrhagic anaemia [Recovering/Resolving]
  - Mucosal ulceration [Unknown]
  - Abdominal lymphadenopathy [Unknown]
  - Ileal ulcer [Unknown]

NARRATIVE: CASE EVENT DATE: 201208
